FAERS Safety Report 12343730 (Version 1)
Quarter: 2016Q2

REPORT INFORMATION
  Report Type: Report from Study
  Country: FR (occurrence: FR)
  Receive Date: 20160507
  Receipt Date: 20160507
  Transmission Date: 20160815
  Serious: Yes (Other)
  Sender: FDA-Public Use
  Company Number: FR-GILEAD-2013-0076172

PATIENT
  Age: 34 Year
  Sex: Female
  Weight: 69.2 kg

DRUGS (11)
  1. LEDIPASVIR/SOFOSBUVIR [Suspect]
     Active Substance: LEDIPASVIR\SOFOSBUVIR
     Indication: HEPATITIS C
     Dosage: 1 DF, QD
     Route: 048
     Dates: start: 20130418, end: 20130628
  2. TOLEXINE                           /00055701/ [Concomitant]
     Active Substance: DOXYCYCLINE
     Indication: ACNE
     Dosage: UNK
     Route: 065
     Dates: start: 201302
  3. PRIMPERAN [Concomitant]
     Active Substance: METOCLOPRAMIDE HYDROCHLORIDE
     Indication: NAUSEA
     Dosage: UNK
     Route: 065
     Dates: start: 20130613, end: 20130703
  4. DAFALGAN [Concomitant]
     Active Substance: ACETAMINOPHEN
     Indication: HEADACHE
     Dosage: 3 G, QD
     Route: 048
     Dates: start: 20130503
  5. STILNOX [Concomitant]
     Active Substance: ZOLPIDEM TARTRATE
     Indication: IRRITABILITY
     Dosage: 1 DF, QD
     Route: 048
     Dates: start: 20130514, end: 20130529
  6. STILNOX [Concomitant]
     Active Substance: ZOLPIDEM TARTRATE
     Indication: INSOMNIA
  7. LUTERAN [Concomitant]
     Active Substance: CHLORMADINONE ACETATE
     Indication: CONTRACEPTION
     Dosage: 10 MG, QD
     Route: 048
     Dates: start: 20130529
  8. VOGALENE [Concomitant]
     Active Substance: METOPIMAZINE
     Indication: NAUSEA
     Dosage: UNK
     Route: 065
     Dates: start: 20130529, end: 20130613
  9. DAKTARIN                           /00310801/ [Concomitant]
     Active Substance: MICONAZOLE NITRATE
     Indication: GASTROINTESTINAL FUNGAL INFECTION
     Dosage: UNK
     Route: 065
     Dates: start: 20130616, end: 20130704
  10. LEXOMIL [Concomitant]
     Active Substance: BROMAZEPAM
     Indication: IRRITABILITY
     Dosage: 1 DF, QD
     Route: 048
     Dates: start: 20130529, end: 20130613
  11. LEXOMIL [Concomitant]
     Active Substance: BROMAZEPAM
     Indication: INSOMNIA

REACTIONS (1)
  - Salpingitis [Recovered/Resolved]

NARRATIVE: CASE EVENT DATE: 20130421
